FAERS Safety Report 8027253-5 (Version None)
Quarter: 2012Q1

REPORT INFORMATION
  Report Type: 
  Country: None (occurrence: None)
  Receive Date: 20120106
  Receipt Date: 20120102
  Transmission Date: 20120608
  Serious: Yes (Hospitalization, Other)
  Sender: FDA-Public Use
  Company Number: FR-JNJFOC-20120101382

PATIENT
  Sex: Female
  Weight: 78 kg

DRUGS (10)
  1. PAROXETINE [Concomitant]
     Route: 048
     Dates: start: 20110915
  2. XARELTO [Suspect]
     Indication: THROMBOSIS PROPHYLAXIS
     Route: 048
     Dates: start: 20110929, end: 20111002
  3. ZOLPIDEM [Concomitant]
     Route: 048
  4. VOLTAREN [Concomitant]
     Route: 048
  5. CRESTOR [Concomitant]
     Route: 048
  6. GLUCOSAMINE [Concomitant]
     Route: 048
  7. NEXIUM [Concomitant]
     Route: 048
  8. XARELTO [Suspect]
     Indication: KNEE ARTHROPLASTY
     Route: 048
     Dates: start: 20110929, end: 20111002
  9. VASTAREL [Concomitant]
     Route: 048
  10. VITAMIN D [Concomitant]
     Route: 048

REACTIONS (1)
  - DEEP VEIN THROMBOSIS [None]
